FAERS Safety Report 15058903 (Version 1)
Quarter: 2018Q2

REPORT INFORMATION
  Report Type: Spontaneous
  Country: AT (occurrence: AT)
  Receive Date: 20180625
  Receipt Date: 20180625
  Transmission Date: 20180711
  Serious: Yes (Other)
  Sender: FDA-Public Use
  Company Number: AT-MYLANLABS-2018M1009495

PATIENT
  Age: 82 Year
  Sex: Male

DRUGS (7)
  1. OFATUMUMAB [Concomitant]
     Active Substance: OFATUMUMAB
     Indication: PRODUCT USED FOR UNKNOWN INDICATION
     Dosage: 1000 MG, UNK
  2. OFATUMUMAB [Concomitant]
     Active Substance: OFATUMUMAB
     Dosage: 300 UNK, UNK
     Route: 065
  3. BENDAMUSTINE HYDROCHLORIDE. [Suspect]
     Active Substance: BENDAMUSTINE HYDROCHLORIDE
     Indication: HAIRY CELL LEUKAEMIA
     Dosage: 100 MG/M2, CYCLE
     Route: 042
  4. RITUXIMAB. [Suspect]
     Active Substance: RITUXIMAB
     Indication: HAIRY CELL LEUKAEMIA
     Dosage: 375 MG/M2, CYCLE
     Route: 042
  5. OFATUMUMAB [Concomitant]
     Active Substance: OFATUMUMAB
     Dosage: 2000 UNK, UNK
     Route: 065
  6. IBRUTINIB [Concomitant]
     Active Substance: IBRUTINIB
     Indication: HAIRY CELL LEUKAEMIA
     Dosage: 420 MG, UNK
     Route: 065
  7. 2-CDA [Concomitant]
     Active Substance: CLADRIBINE
     Indication: HAIRY CELL LEUKAEMIA

REACTIONS (2)
  - Skin toxicity [Unknown]
  - Type IV hypersensitivity reaction [Unknown]
